FAERS Safety Report 5065717-7 (Version None)
Quarter: 2006Q3

REPORT INFORMATION
  Report Type: 
  Country: None (occurrence: None)
  Receive Date: 20060731
  Receipt Date: 20060718
  Transmission Date: 20061208
  Serious: Yes (Life-Threatening, Disabling, Other)
  Sender: FDA-Public Use
  Company Number: US-MERCK-0607USA03699

PATIENT
  Age: 53 Year
  Sex: Female

DRUGS (4)
  1. VYTORIN [Suspect]
     Indication: BLOOD CHOLESTEROL INCREASED
     Route: 048
     Dates: start: 20060401, end: 20060422
  2. VYTORIN [Suspect]
     Route: 048
     Dates: start: 20060401
  3. ATENOLOL [Concomitant]
     Route: 065
  4. NORVASC [Concomitant]
     Route: 065

REACTIONS (15)
  - AMNESIA [None]
  - ANXIETY [None]
  - ASTHENIA [None]
  - CARDIAC MURMUR [None]
  - CEREBROVASCULAR ACCIDENT [None]
  - CYST [None]
  - DEPRESSION [None]
  - DROOLING [None]
  - DYSARTHRIA [None]
  - FALL [None]
  - HYPERLIPIDAEMIA [None]
  - OBSTRUCTIVE AIRWAYS DISORDER [None]
  - PALPITATIONS [None]
  - SPEECH DISORDER [None]
  - SWOLLEN TONGUE [None]
